FAERS Safety Report 23087153 (Version 1)
Quarter: 2023Q4

REPORT INFORMATION
  Report Type: Spontaneous
  Country: CN (occurrence: None)
  Receive Date: 20231020
  Receipt Date: 20231020
  Transmission Date: 20240110
  Serious: Yes (Other)
  Sender: FDA-Public Use
  Company Number: CN-ROCHE-3441739

PATIENT
  Age: 58 Year
  Sex: Male
  Weight: 50.8 kg

DRUGS (4)
  1. TECENTRIQ [Suspect]
     Active Substance: ATEZOLIZUMAB
     Indication: Lung neoplasm malignant
     Route: 041
     Dates: start: 20230919, end: 20230919
  2. TECENTRIQ [Suspect]
     Active Substance: ATEZOLIZUMAB
     Route: 041
     Dates: start: 20231009
  3. ETOPOSIDE [Suspect]
     Active Substance: ETOPOSIDE
     Indication: Lung neoplasm malignant
     Route: 041
     Dates: start: 20230919
  4. CARBOPLATIN [Suspect]
     Active Substance: CARBOPLATIN
     Indication: Lung neoplasm malignant
     Route: 041
     Dates: start: 20230919

REACTIONS (1)
  - Myelosuppression [Recovering/Resolving]

NARRATIVE: CASE EVENT DATE: 20231007
